FAERS Safety Report 14974818 (Version 1)
Quarter: 2018Q2

REPORT INFORMATION
  Report Type: Spontaneous
  Country: GB (occurrence: GB)
  Receive Date: 20180605
  Receipt Date: 20180605
  Transmission Date: 20180711
  Serious: Yes (Other)
  Sender: FDA-Public Use
  Company Number: GB-GILEAD-2018-0342401

PATIENT
  Age: 68 Year
  Sex: Male
  Weight: 95 kg

DRUGS (12)
  1. TAMSULOSIN [Concomitant]
     Active Substance: TAMSULOSIN
  2. ASCORBIC ACID W/CALCIUM PANTOTHENAT/00097801/ [Concomitant]
  3. RANOLAZINE. [Suspect]
     Active Substance: RANOLAZINE
     Indication: MYOCARDIAL INFARCTION
     Dosage: UNK
     Route: 048
     Dates: start: 20171107, end: 20180427
  4. GINKGO BILOBA [Concomitant]
     Active Substance: GINKGO
  5. ATORVASTATIN [Concomitant]
     Active Substance: ATORVASTATIN
  6. GLUCOSAMINE [Concomitant]
     Active Substance: GLUCOSAMINE
  7. ACETYLSALICYLIC ACID [Concomitant]
     Active Substance: ASPIRIN
  8. UBIDECARENONE [Concomitant]
     Active Substance: UBIDECARENONE
  9. ALLIUM SATIVUM [Concomitant]
  10. OMEPRAZOLE. [Concomitant]
     Active Substance: OMEPRAZOLE
  11. NICORANDIL [Concomitant]
     Active Substance: NICORANDIL
  12. RAMIPRIL. [Concomitant]
     Active Substance: RAMIPRIL

REACTIONS (4)
  - Joint swelling [Recovered/Resolved with Sequelae]
  - Arthralgia [Recovered/Resolved with Sequelae]
  - Urinary retention [Not Recovered/Not Resolved]
  - Off label use [Recovered/Resolved]

NARRATIVE: CASE EVENT DATE: 20171107
